FAERS Safety Report 4331053-7 (Version None)
Quarter: 2004Q2

REPORT INFORMATION
  Report Type: 
  Country: None (occurrence: None)
  Receive Date: 20040405
  Receipt Date: 20040113
  Transmission Date: 20050107
  Serious: Yes (Death, Life-Threatening, Hospitalization, Disabling, Other)
  Sender: FDA-Public Use
  Company Number: PHBS2004JP00778

PATIENT
  Age: 69 Year
  Sex: Male
  Weight: 45 kg

DRUGS (7)
  1. GLEEVEC [Suspect]
     Indication: GASTROINTESTINAL STROMAL TUMOUR
     Dosage: 400 MG/DAY
     Route: 048
     Dates: start: 20031112, end: 20031127
  2. ADALAT [Concomitant]
     Dosage: 20 MG/D
     Route: 048
     Dates: start: 20031121
  3. BERIZYM [Concomitant]
     Dosage: 3 G/D
     Route: 048
     Dates: start: 20031107
  4. NAUZELIN [Concomitant]
     Dosage: 3 DF/D
     Route: 048
     Dates: start: 20031101
  5. CONIEL [Concomitant]
     Dosage: 1 DF/D
     Route: 048
     Dates: start: 19990323
  6. LASIX [Concomitant]
     Dosage: 40 MG/D
     Route: 048
     Dates: start: 20031120
  7. ALDACTAZIDE-A [Concomitant]
     Dosage: 1 DF/D
     Route: 048
     Dates: start: 20031124

REACTIONS (22)
  - ABDOMINAL DISTENSION [None]
  - ANOREXIA [None]
  - ASCITES [None]
  - DEAFNESS [None]
  - DISEASE PROGRESSION [None]
  - DISSEMINATED INTRAVASCULAR COAGULATION [None]
  - FACE OEDEMA [None]
  - HAEMOGLOBIN DECREASED [None]
  - HYPOCALCAEMIA [None]
  - HYPOGLYCAEMIA [None]
  - HYPOGLYCAEMIC COMA [None]
  - LIVER DISORDER [None]
  - LIVER FUNCTION TEST ABNORMAL [None]
  - LOSS OF CONSCIOUSNESS [None]
  - MULTI-ORGAN FAILURE [None]
  - MYALGIA [None]
  - NEUTROPHIL COUNT DECREASED [None]
  - PLATELET COUNT DECREASED [None]
  - PLEURAL EFFUSION [None]
  - RENAL IMPAIRMENT [None]
  - TOXIC SKIN ERUPTION [None]
  - WHITE BLOOD CELL COUNT DECREASED [None]
